FAERS Safety Report 8014459-4 (Version None)
Quarter: 2011Q4

REPORT INFORMATION
  Report Type: 
  Country: None (occurrence: None)
  Receive Date: 20111229
  Receipt Date: 20111222
  Transmission Date: 20120403
  Serious: Yes (Hospitalization, Other)
  Sender: FDA-Public Use
  Company Number: PHHY2011BR112281

PATIENT
  Sex: Male
  Weight: 100 kg

DRUGS (3)
  1. DIOVAN HCT [Suspect]
     Dosage: 1 TABLET (160/12.5MG) DAILY
     Route: 048
  2. DIOVAN HCT [Suspect]
     Dosage: 1 TABLET (160/12.5MG) DAILY
     Route: 048
  3. DIOVAN HCT [Suspect]
     Indication: HYPERTENSION
     Dosage: 1 TABLET (160/12.5MG) DAILY
     Route: 048

REACTIONS (5)
  - RENAL CANCER [None]
  - ABDOMINAL DISCOMFORT [None]
  - BLISTER [None]
  - EMOTIONAL DISORDER [None]
  - AFFECT LABILITY [None]
